FAERS Safety Report 13652317 (Version 3)
Quarter: 2017Q3

REPORT INFORMATION
  Report Type: Report from Study
  Country: US (occurrence: US)
  Receive Date: 20170614
  Receipt Date: 20170727
  Transmission Date: 20171127
  Serious: Yes (Death)
  Sender: FDA-Public Use
  Company Number: PHHO2017US008891

PATIENT
  Age: 12 Year
  Sex: Male
  Weight: 79.6 kg

DRUGS (15)
  1. VELCADE [Suspect]
     Active Substance: BORTEZOMIB
     Indication: ACUTE LYMPHOCYTIC LEUKAEMIA
     Dosage: 1.3 MG/M2 X 4 DOSES
     Route: 042
     Dates: start: 20170419, end: 20170430
  2. ETOPOSIDE. [Suspect]
     Active Substance: ETOPOSIDE
     Indication: ACUTE LYMPHOCYTIC LEUKAEMIA
     Dosage: UNK
     Route: 048
  3. CYCLOPHOSPHAMIDE. [Suspect]
     Active Substance: CYCLOPHOSPHAMIDE
     Indication: ACUTE LYMPHOCYTIC LEUKAEMIA
     Dosage: UNK
     Route: 048
  4. VINCRISTINE SULPHATE [Suspect]
     Active Substance: VINCRISTINE SULFATE
     Indication: ACUTE LYMPHOCYTIC LEUKAEMIA
     Dosage: 2.25 MG/M2, (4.24 MG) DAYS 8,15,22,29
     Route: 042
     Dates: start: 20170410
  5. FARYDAK [Suspect]
     Active Substance: PANOBINOSTAT
     Dosage: 45 MG, QD (DAILY ON DAYS 2,4,6)
     Route: 048
     Dates: start: 20170408
  6. MITOXANTRONE [Suspect]
     Active Substance: MITOXANTRONE HYDROCHLORIDE
     Dosage: 10 MG/M2, QD
     Route: 042
     Dates: start: 20170417
  7. VINCRISTINE SULPHATE [Suspect]
     Active Substance: VINCRISTINE SULFATE
     Dosage: 2.25 MG/M2, (4.24 MG) DAYS 8,15,22,29
     Route: 042
     Dates: start: 20170417
  8. VINCRISTINE SULPHATE [Suspect]
     Active Substance: VINCRISTINE SULFATE
     Dosage: 2.25 MG/M2, (4.24 MG) DAYS 8,15,22,29
     Route: 042
     Dates: start: 20170501
  9. DEXAMETHASONE. [Suspect]
     Active Substance: DEXAMETHASONE
     Indication: ACUTE LYMPHOCYTIC LEUKAEMIA
     Dosage: 10 MG/M2, TID
     Route: 048
     Dates: start: 20170403, end: 20170417
  10. FARYDAK [Suspect]
     Active Substance: PANOBINOSTAT
     Indication: ACUTE LYMPHOCYTIC LEUKAEMIA
     Dosage: 45 MG, QD (DAILY ON DAYS 2,4,6)
     Route: 048
     Dates: start: 20170404
  11. ASPARAGINASE [Concomitant]
     Active Substance: ASPARAGINASE
     Indication: ACUTE LYMPHOCYTIC LEUKAEMIA
     Dosage: 25000 U/M2 X10 DOSES
     Route: 065
     Dates: start: 20170411, end: 20170503
  12. NELARABINE [Suspect]
     Active Substance: NELARABINE
     Indication: ACUTE LYMPHOCYTIC LEUKAEMIA
     Dosage: UNK
     Route: 042
  13. VINCRISTINE SULPHATE [Suspect]
     Active Substance: VINCRISTINE SULFATE
     Dosage: 2.25 MG/M2, (4.24 MG) DAYS 8,15,22,29
     Route: 042
     Dates: start: 20170424
  14. MITOXANTRONE [Suspect]
     Active Substance: MITOXANTRONE HYDROCHLORIDE
     Indication: ACUTE LYMPHOCYTIC LEUKAEMIA
     Dosage: 10 MG/M2, QD
     Route: 042
     Dates: start: 20170410, end: 20170417
  15. FARYDAK [Suspect]
     Active Substance: PANOBINOSTAT
     Dosage: 45 MG, QD (DAILY ON DAYS 2,4,6)
     Route: 048
     Dates: start: 20170406

REACTIONS (4)
  - Cardio-respiratory arrest [Fatal]
  - Hypoxia [Fatal]
  - Acute lymphocytic leukaemia [Fatal]
  - Malignant neoplasm progression [Fatal]

NARRATIVE: CASE EVENT DATE: 20170526
